FAERS Safety Report 4708465-2 (Version None)
Quarter: 2005Q3

REPORT INFORMATION
  Report Type: 
  Country: None (occurrence: None)
  Receive Date: 20050705
  Receipt Date: 20050624
  Transmission Date: 20060218
  Serious: Yes (Disabling)
  Sender: FDA-Public Use
  Company Number: HQWYE682824JUN05

PATIENT
  Age: 47 Year
  Sex: Male

DRUGS (3)
  1. PANTOZOL (PANTOPRAZOLE, TABLET, DELAYED RELEASE) [Suspect]
     Indication: HELICOBACTER INFECTION
     Dosage: 40 MG 2X PER 1 DAY ORAL
     Route: 048
     Dates: start: 20041001
  2. AMOXICILLIN [Suspect]
     Indication: HELICOBACTER INFECTION
     Dosage: 1000 MG 2X PER 1 DAY ORAL
     Route: 048
     Dates: start: 20041001
  3. CLARITHROMYCIN [Suspect]
     Indication: HELICOBACTER INFECTION
     Dosage: 500 MG 2X PER 1 DAY ORAL
     Route: 048
     Dates: start: 20041001

REACTIONS (4)
  - DRY MOUTH [None]
  - GLOSSODYNIA [None]
  - TONGUE DISCOLOURATION [None]
  - TONGUE EXFOLIATION [None]
